FAERS Safety Report 5036371-5 (Version None)
Quarter: 2006Q2

REPORT INFORMATION
  Report Type: 
  Country: None (occurrence: None)
  Receive Date: 20060601
  Receipt Date: 20060418
  Transmission Date: 20061013
  Serious: No
  Sender: FDA-Public Use
  Company Number: US200604002943

PATIENT
  Age: 72 Year
  Sex: Female

DRUGS (5)
  1. CYMBALTA [Suspect]
     Indication: NEUROPATHY
     Dosage: 60 MG, DAILY (1/D)
     Dates: start: 20050801
  2. PREMARIN [Concomitant]
  3. ANTIHYPERTENSIVES [Concomitant]
  4. VITAMINS NOS (VITAMINS NOS) [Concomitant]
  5. CALCIUM CARBONATE (CALCIUM CARBONATE) [Concomitant]

REACTIONS (1)
  - RESTLESS LEGS SYNDROME [None]
